FAERS Safety Report 7155921 (Version 16)
Quarter: 2024Q3

REPORT INFORMATION
  Report Type: Spontaneous
  Country: CA (occurrence: CA)
  Receive Date: 20091022
  Receipt Date: 20240708
  Transmission Date: 20241017
  Serious: Yes (Other)
  Sender: ROCHE
  Company Number: CA-ROCHE-663583

PATIENT
  Age: 52 Year
  Sex: Male

DRUGS (50)
  1. SAQUINAVIR [Suspect]
     Active Substance: SAQUINAVIR
     Indication: HIV infection
     Route: 048
  2. FUZEON [Suspect]
     Active Substance: ENFUVIRTIDE
     Indication: HIV infection
     Dosage: SINGLE USE VIAL, DOSAGE FORM WAS POWDER FOR SOLUTION SUBCUTANEOUS
     Route: 058
  3. NELFINAVIR [Suspect]
     Active Substance: NELFINAVIR
     Indication: HIV infection
     Dosage: FILM-COATED TABLET
     Route: 048
  4. TENOFOVIR DISOPROXIL FUMARATE [Suspect]
     Active Substance: TENOFOVIR DISOPROXIL FUMARATE
     Indication: HIV infection
     Route: 048
  5. TENOFOVIR DISOPROXIL FUMARATE [Suspect]
     Active Substance: TENOFOVIR DISOPROXIL FUMARATE
     Route: 048
  6. ZIDOVUDINE [Suspect]
     Active Substance: ZIDOVUDINE
     Indication: HIV infection
     Route: 065
  7. VIDEX EC [Suspect]
     Active Substance: DIDANOSINE
     Indication: HIV infection
     Dosage: GASTRO-RESISTANT CAPSULE THERAPY DURATION: 3233 DAYS, ENTERIC COATED
     Route: 048
  8. ZERIT [Suspect]
     Active Substance: STAVUDINE
     Indication: HIV infection
     Route: 065
  9. ZIAGEN [Suspect]
     Active Substance: ABACAVIR SULFATE
     Indication: HIV infection
     Route: 065
  10. ZIAGEN [Suspect]
     Active Substance: ABACAVIR SULFATE
     Route: 048
  11. NEVIRAPINE [Suspect]
     Active Substance: NEVIRAPINE
     Indication: HIV infection
     Route: 048
  12. NEVIRAPINE [Suspect]
     Active Substance: NEVIRAPINE
     Route: 065
  13. RESCRIPTOR [Suspect]
     Active Substance: DELAVIRDINE MESYLATE
     Indication: HIV infection
     Route: 048
  14. SUSTIVA [Suspect]
     Active Substance: EFAVIRENZ
     Indication: HIV infection
     Route: 048
  15. CRIXIVAN [Suspect]
     Active Substance: INDINAVIR SULFATE
     Indication: HIV infection
     Route: 048
  16. KALETRA [Suspect]
     Active Substance: LOPINAVIR\RITONAVIR
     Indication: HIV infection
     Route: 065
  17. VIREAD [Suspect]
     Active Substance: TENOFOVIR DISOPROXIL FUMARATE
     Indication: HIV infection
     Route: 048
  18. PREZISTA [Suspect]
     Active Substance: DARUNAVIR ETHANOLATE
     Indication: HIV infection
     Route: 048
  19. LAMIVUDINE [Suspect]
     Active Substance: LAMIVUDINE
     Indication: HIV infection
     Route: 065
  20. LAMIVUDINE [Suspect]
     Active Substance: LAMIVUDINE
     Indication: Antiretroviral therapy
     Route: 065
  21. LAMIVUDINE [Suspect]
     Active Substance: LAMIVUDINE
     Route: 065
  22. RITONAVIR [Suspect]
     Active Substance: RITONAVIR
     Indication: HIV infection
     Route: 065
  23. RITONAVIR [Suspect]
     Active Substance: RITONAVIR
     Route: 065
  24. LOPINAVIR [Suspect]
     Active Substance: LOPINAVIR
     Indication: HIV infection
     Route: 065
  25. ISENTRESS [Suspect]
     Active Substance: RALTEGRAVIR POTASSIUM
     Indication: HIV infection
     Route: 048
  26. INTELENCE [Suspect]
     Active Substance: ETRAVIRINE
     Indication: HIV infection
     Route: 048
  27. DIDANOSINE [Suspect]
     Active Substance: DIDANOSINE
     Indication: HIV infection
     Route: 065
  28. DIDANOSINE [Suspect]
     Active Substance: DIDANOSINE
     Route: 065
  29. STAVUDINE [Suspect]
     Active Substance: STAVUDINE
     Indication: HIV infection
     Route: 048
  30. STAVUDINE [Suspect]
     Active Substance: STAVUDINE
     Route: 048
  31. STAVUDINE [Suspect]
     Active Substance: STAVUDINE
     Route: 065
  32. DELAVIRDINE MESYLATE [Suspect]
     Active Substance: DELAVIRDINE MESYLATE
     Indication: HIV infection
     Route: 065
  33. DELAVIRDINE MESYLATE [Suspect]
     Active Substance: DELAVIRDINE MESYLATE
     Route: 065
  34. VIRAMUNE [Suspect]
     Active Substance: NEVIRAPINE
     Indication: HIV infection
     Route: 048
  35. EFAVIRENZ [Suspect]
     Active Substance: EFAVIRENZ
     Indication: HIV infection
     Route: 048
  36. EFAVIRENZ [Suspect]
     Active Substance: EFAVIRENZ
     Route: 048
  37. INDINAVIR [Suspect]
     Active Substance: INDINAVIR
     Indication: HIV infection
     Route: 065
  38. INDINAVIR [Suspect]
     Active Substance: INDINAVIR
     Route: 048
  39. DARUNAVIR [Suspect]
     Active Substance: DARUNAVIR
     Indication: HIV infection
     Route: 065
  40. DARUNAVIR [Suspect]
     Active Substance: DARUNAVIR
     Indication: Antiretroviral therapy
     Route: 065
  41. NORVIR [Suspect]
     Active Substance: RITONAVIR
     Indication: HIV infection
     Route: 065
  42. NORVIR [Suspect]
     Active Substance: RITONAVIR
     Indication: Antiretroviral therapy
     Route: 048
  43. NORVIR [Suspect]
     Active Substance: RITONAVIR
     Route: 065
  44. RALTEGRAVIR [Suspect]
     Active Substance: RALTEGRAVIR
     Indication: HIV infection
     Route: 065
  45. RALTEGRAVIR [Suspect]
     Active Substance: RALTEGRAVIR
     Indication: Antiretroviral therapy
     Route: 048
  46. ETRAVIRINE [Suspect]
     Active Substance: ETRAVIRINE
     Indication: HIV infection
     Route: 065
  47. ETRAVIRINE [Suspect]
     Active Substance: ETRAVIRINE
     Indication: Antiretroviral therapy
     Route: 048
  48. ABACAVIR SULFATE [Suspect]
     Active Substance: ABACAVIR SULFATE
     Indication: HIV infection
     Route: 065
  49. ABACAVIR SULFATE [Suspect]
     Active Substance: ABACAVIR SULFATE
     Indication: Antiretroviral therapy
     Route: 065
  50. ABACAVIR SULFATE [Suspect]
     Active Substance: ABACAVIR SULFATE
     Route: 048

REACTIONS (8)
  - Ophthalmoplegia [Not Recovered/Not Resolved]
  - Diplopia [Not Recovered/Not Resolved]
  - Mitochondrial toxicity [Not Recovered/Not Resolved]
  - Lipodystrophy acquired [Not Recovered/Not Resolved]
  - Eyelid ptosis [Not Recovered/Not Resolved]
  - Blood lactic acid increased [Not Recovered/Not Resolved]
  - Dysphagia [Not Recovered/Not Resolved]
  - Progressive external ophthalmoplegia [Not Recovered/Not Resolved]
